FAERS Safety Report 18158042 (Version 1)
Quarter: 2020Q3

REPORT INFORMATION
  Report Type: Spontaneous
  Country: US (occurrence: US)
  Receive Date: 20200817
  Receipt Date: 20200817
  Transmission Date: 20201103
  Serious: No
  Sender: FDA-Public Use
  Company Number: US-MEDEXUS PHARMA, INC.-2020MED00041

PATIENT
  Age: 54 Year
  Sex: Female
  Weight: 68.03 kg

DRUGS (7)
  1. PRENATAL VITAMIN WITH FOLIC ACID [Concomitant]
  2. MILK THISTLE [Concomitant]
     Active Substance: DIETARY SUPPLEMENT\HERBALS\MILK THISTLE
  3. BONE UP [Concomitant]
  4. MAGNESIUM [Concomitant]
     Active Substance: MAGNESIUM
  5. RASUVO [Suspect]
     Active Substance: METHOTREXATE SODIUM
     Indication: PSORIATIC ARTHROPATHY
     Dosage: 20 MG, 1X/WEEK ON SUNDAYS INJECTED INTO ALTERNATE SITES
     Dates: start: 201909
  6. HUMIRA [Concomitant]
     Active Substance: ADALIMUMAB
     Dosage: ON SUNDAYS
  7. RASUVO [Suspect]
     Active Substance: METHOTREXATE SODIUM
     Dosage: 20 MG, 1X/WEEK ON TUESDAY INJECTED INTO ALTERNATE SITES
     Dates: end: 20200202

REACTIONS (7)
  - Musculoskeletal stiffness [Recovered/Resolved]
  - Hepatic enzyme decreased [Unknown]
  - Lymphadenopathy [Recovering/Resolving]
  - Muscle tightness [Recovered/Resolved]
  - Influenza [Recovered/Resolved]
  - Urinary tract infection [Recovered/Resolved]
  - Hypophagia [Recovered/Resolved]

NARRATIVE: CASE EVENT DATE: 20200202
